FAERS Safety Report 8309036-1 (Version None)
Quarter: 2012Q2

REPORT INFORMATION
  Report Type: 
  Country: None (occurrence: None)
  Receive Date: 20120424
  Receipt Date: 20120418
  Transmission Date: 20120825
  Serious: Yes (Other)
  Sender: FDA-Public Use
  Company Number: US-ELI_LILLY_AND_COMPANY-US201204006455

PATIENT
  Sex: Female

DRUGS (4)
  1. HUMULIN 70/30 [Suspect]
     Indication: DIABETES MELLITUS
     Dosage: 45 U, EACH MORNING
  2. HUMULIN 70/30 [Suspect]
     Dosage: 50 U, EACH EVENING
  3. HUMULIN 70/30 [Suspect]
     Dosage: 45 U, EACH MORNING
     Dates: start: 19920101
  4. HUMULIN 70/30 [Suspect]
     Dosage: 50 U, EACH EVENING
     Dates: start: 19920101

REACTIONS (3)
  - BLOOD GLUCOSE INCREASED [None]
  - BACK PAIN [None]
  - DRUG DOSE OMISSION [None]
